FAERS Safety Report 4746500-6 (Version None)
Quarter: 2005Q3

REPORT INFORMATION
  Report Type: 
  Country: None (occurrence: None)
  Receive Date: 20050817
  Receipt Date: 20050629
  Transmission Date: 20060218
  Serious: Yes (Hospitalization, Other)
  Sender: FDA-Public Use
  Company Number: CN-NOVOPROD-245221

PATIENT
  Age: 40 Year
  Sex: Male
  Weight: 65 kg

DRUGS (6)
  1. NOVOLIN R PENFILL [Suspect]
     Indication: DIABETES MELLITUS INSULIN-DEPENDENT
     Dosage: 20+12+20 IU
     Dates: start: 20050616, end: 20050623
  2. NOVOLIN R PENFILL [Suspect]
     Dosage: 20+12+20 NEW PENFILL
     Dates: start: 20050624, end: 20050624
  3. NOVOLIN N [Suspect]
     Indication: DIABETES MELLITUS INSULIN-DEPENDENT
     Dosage: 6 IU, QD
     Dates: start: 20050616, end: 20050624
  4. FUROSEMIDE [Concomitant]
     Dosage: 40 MG, UNK
     Dates: start: 20050603, end: 20050608
  5. FUROSEMIDE [Concomitant]
     Dosage: 20 MG, UNK
     Dates: start: 20050609
  6. AMLODIPINE [Concomitant]
     Dosage: 5 MG, UNK
     Dates: start: 20050609

REACTIONS (8)
  - ASTHENIA [None]
  - BLOOD GLUCOSE INCREASED [None]
  - DRUG INEFFECTIVE [None]
  - ELECTROLYTE IMBALANCE [None]
  - HEADACHE [None]
  - HYPERKALAEMIA [None]
  - PAIN IN EXTREMITY [None]
  - PHARMACEUTICAL PRODUCT COMPLAINT [None]
